FAERS Safety Report 9207732 (Version 1)
Quarter: 2013Q2

REPORT INFORMATION
  Report Type: Other
  Country: US (occurrence: US)
  Receive Date: 20130403
  Receipt Date: 20130403
  Transmission Date: 20140414
  Serious: Yes (Other)
  Sender: FDA-Public Use
  Company Number: US-BRISTOL-MYERS SQUIBB COMPANY-18745851

PATIENT
  Age: 72 Year
  Sex: Male

DRUGS (3)
  1. AMANTADINE HCL [Suspect]
     Indication: PARKINSON^S DISEASE
  2. CARBIDOPA + LEVODOPA [Suspect]
  3. ROPINIROLE [Suspect]

REACTIONS (1)
  - Hallucination, visual [Unknown]
